FAERS Safety Report 11881242 (Version 1)
Quarter: 2015Q4

REPORT INFORMATION
  Report Type: Other
  Country: IN (occurrence: IN)
  Receive Date: 20151231
  Receipt Date: 20151231
  Transmission Date: 20160305
  Serious: Yes (Hospitalization)
  Sender: FDA-Public Use
  Company Number: IN-DEXPHARM-20153231

PATIENT
  Age: 30 Year
  Sex: Female

DRUGS (1)
  1. DICLOFENAC INJECTION [Suspect]
     Active Substance: DICLOFENAC
     Indication: JOINT INJURY
     Route: 030

REACTIONS (1)
  - Acute febrile neutrophilic dermatosis [Recovered/Resolved]
